FAERS Safety Report 8581224-9 (Version None)
Quarter: 2012Q3

REPORT INFORMATION
  Report Type: 
  Country: None (occurrence: None)
  Receive Date: 20120809
  Receipt Date: 20120731
  Transmission Date: 20120928
  Serious: Yes (Hospitalization, Other)
  Sender: FDA-Public Use
  Company Number: PHHY2011BR40336

PATIENT
  Sex: Male

DRUGS (6)
  1. SANDOSTATIN LAR [Suspect]
     Indication: ACROMEGALY
     Dosage: 30 MG, EVERY 30 DAYS
     Route: 030
     Dates: start: 20000601
  2. SANDOSTATIN LAR [Suspect]
     Route: 030
  3. TEGRETOL [Suspect]
     Indication: CONVULSION
     Dosage: 2 DF, DAILY
  4. TEGRETOL [Suspect]
     Dosage: 3 DF, DAILY
  5. TEGRETOL [Suspect]
     Dosage: 4 DF, DAILY
  6. TESTOSTERONE CYPIONATE [Concomitant]
     Indication: HORMONE REPLACEMENT THERAPY

REACTIONS (21)
  - HYPERHIDROSIS [None]
  - WEIGHT DECREASED [None]
  - PAIN IN EXTREMITY [None]
  - CEREBRAL ISCHAEMIA [None]
  - LUNG INFECTION [None]
  - LIVER DISORDER [None]
  - NEPHROLITHIASIS [None]
  - DYSPNOEA [None]
  - SLEEP APNOEA SYNDROME [None]
  - HORMONE LEVEL ABNORMAL [None]
  - CONVULSION [None]
  - ARTHRALGIA [None]
  - HYPERGLYCAEMIA [None]
  - DIZZINESS [None]
  - MUSCULOSKELETAL STIFFNESS [None]
  - SOMNOLENCE [None]
  - DEPRESSION [None]
  - CHOLELITHIASIS [None]
  - HYPERTENSION [None]
  - FEELING ABNORMAL [None]
  - ARRHYTHMIA [None]
